FAERS Safety Report 23528334 (Version 3)
Quarter: 2024Q2

REPORT INFORMATION
  Report Type: Spontaneous
  Country: US (occurrence: US)
  Receive Date: 20240215
  Receipt Date: 20240603
  Transmission Date: 20240716
  Serious: No
  Sender: FDA-Public Use
  Company Number: US-BRISTOL-MYERS SQUIBB COMPANY-2024-020423

PATIENT
  Age: 59 Year
  Sex: Male

DRUGS (1)
  1. LENALIDOMIDE [Suspect]
     Active Substance: LENALIDOMIDE
     Indication: Plasma cell myeloma
     Dosage: FREQ-14
     Dates: start: 20100907

REACTIONS (3)
  - Product prescribing error [Unknown]
  - Off label use [Unknown]
  - Light chain analysis increased [Unknown]

NARRATIVE: CASE EVENT DATE: 20240101
